FAERS Safety Report 16796479 (Version 2)
Quarter: 2019Q4

REPORT INFORMATION
  Report Type: Report from Study
  Country: US (occurrence: US)
  Receive Date: 20190911
  Receipt Date: 20191014
  Transmission Date: 20200122
  Serious: No
  Sender: FDA-Public Use
  Company Number: US-SA-2019SA222948

PATIENT
  Age: 73 Year
  Sex: Male

DRUGS (1)
  1. ALIROCUMAB [Suspect]
     Active Substance: ALIROCUMAB
     Indication: BLOOD CHOLESTEROL INCREASED
     Dosage: 75 MG, QOW
     Dates: start: 20190814

REACTIONS (3)
  - Incorrect dose administered [Unknown]
  - Device defective [Unknown]
  - Rash [Unknown]

NARRATIVE: CASE EVENT DATE: 20190930
